FAERS Safety Report 25664287 (Version 2)
Quarter: 2025Q3

REPORT INFORMATION
  Report Type: Report from Study
  Country: US (occurrence: US)
  Receive Date: 20250811
  Receipt Date: 20250911
  Transmission Date: 20251021
  Serious: No
  Sender: SUNOVION
  Company Number: US-SUMITOMO PHARMA SWITZERLAND GMBH-2025SPA010034

PATIENT
  Age: 85 Year
  Sex: Male

DRUGS (8)
  1. ORGOVYX [Suspect]
     Active Substance: RELUGOLIX
     Indication: Prostate cancer
     Route: 048
     Dates: start: 20250729, end: 20250729
  2. ORGOVYX [Suspect]
     Active Substance: RELUGOLIX
     Route: 048
  3. ASPIRIN [Concomitant]
     Active Substance: ASPIRIN
  4. MELOXICAM [Concomitant]
     Active Substance: MELOXICAM
  5. PEPCID [Concomitant]
     Active Substance: FAMOTIDINE
  6. MINERALS\VITAMINS [Concomitant]
     Active Substance: MINERALS\VITAMINS
  7. TAMSULOSIN [Concomitant]
     Active Substance: TAMSULOSIN
  8. TIMOLOL MALEATE [Concomitant]
     Active Substance: TIMOLOL MALEATE
     Route: 047

REACTIONS (5)
  - Hyperphagia [Unknown]
  - Feeling hot [Unknown]
  - Weight increased [Unknown]
  - Diarrhoea [Unknown]
  - Depression [Unknown]

NARRATIVE: CASE EVENT DATE: 20250730
